FAERS Safety Report 21148304 (Version 2)
Quarter: 2022Q3

REPORT INFORMATION
  Report Type: Report from Study
  Country: US (occurrence: US)
  Receive Date: 20220729
  Receipt Date: 20220803
  Transmission Date: 20221027
  Serious: Yes (Hospitalization)
  Sender: FDA-Public Use
  Company Number: US-BRISTOL-MYERS SQUIBB COMPANY-2022-077630

PATIENT
  Age: 40 Year
  Sex: Female
  Weight: 122.46 kg

DRUGS (1)
  1. REVLIMID [Suspect]
     Active Substance: LENALIDOMIDE
     Indication: Plasma cell myeloma
     Dosage: 15MG CAPS- 21 BTL BY MOUTH
     Route: 048
     Dates: start: 20220216

REACTIONS (5)
  - Pain [Unknown]
  - Vomiting [Unknown]
  - Blood cholesterol increased [Unknown]
  - Hypersensitivity [Unknown]
  - Illness [Unknown]
